FAERS Safety Report 16178816 (Version 1)
Quarter: 2019Q2

REPORT INFORMATION
  Report Type: Spontaneous
  Country: IL (occurrence: IL)
  Receive Date: 20190410
  Receipt Date: 20190410
  Transmission Date: 20190711
  Serious: Yes (Other)
  Sender: FDA-Public Use
  Company Number: IL-FRESENIUS KABI-FK201903852

PATIENT
  Age: 76 Year
  Sex: Female

DRUGS (4)
  1. LIDOCAINE (MANUFACTURER UNKNOWN) [Suspect]
     Active Substance: LIDOCAINE
     Indication: BACK PAIN
     Route: 008
  2. IOHEXOL [Concomitant]
     Active Substance: IOHEXOL
     Indication: EPIDURAL INJECTION
     Dosage: 0.5-1.5 ML
     Route: 008
  3. METHYLPREDNISOLONE ACETATE. [Suspect]
     Active Substance: METHYLPREDNISOLONE ACETATE
     Indication: BACK PAIN
     Route: 008
  4. SODIUM CHLORIDE. [Concomitant]
     Active Substance: SODIUM CHLORIDE
     Indication: EPIDURAL INJECTION
     Route: 008

REACTIONS (1)
  - Arachnoiditis [Unknown]
